FAERS Safety Report 8882373 (Version 1)
Quarter: 2012Q4

REPORT INFORMATION
  Report Type: Report from Study
  Country: JP (occurrence: JP)
  Receive Date: 20121102
  Receipt Date: 20121102
  Transmission Date: 20130627
  Serious: Yes (Death)
  Sender: FDA-Public Use
  Company Number: JP-UCBSA-069628

PATIENT
  Age: 70 Year
  Sex: Female
  Weight: 49.7 kg

DRUGS (20)
  1. CERTOLIZUMAB PEGOL [Suspect]
     Indication: RHEUMATOID ARTHRITIS
     Route: 058
     Dates: start: 20100722, end: 20121011
  2. CERTOLIZUMAB PEGOL [Suspect]
     Indication: RHEUMATOID ARTHRITIS
     Route: 058
     Dates: start: 20091001, end: 20100527
  3. CERTOLIZUMAB PEGOL [Suspect]
     Indication: RHEUMATOID ARTHRITIS
     Route: 058
     Dates: start: 20090611, end: 20090917
  4. METHOTREXATE [Concomitant]
     Indication: RHEUMATOID ARTHRITIS
     Route: 048
     Dates: start: 20070406, end: 20090410
  5. METHOTREXATE [Concomitant]
     Indication: RHEUMATOID ARTHRITIS
     Route: 048
     Dates: start: 20090417
  6. METHOTREXATE [Concomitant]
     Indication: RHEUMATOID ARTHRITIS
     Route: 048
     Dates: start: 20100903, end: 20121020
  7. CANDESARTAN CILEXETIL [Concomitant]
     Indication: HYPERTENSION
     Route: 048
     Dates: start: 200810, end: 20121022
  8. FOLIC ACID [Concomitant]
     Indication: RHEUMATOID ARTHRITIS
     Route: 048
     Dates: start: 20090419, end: 20121021
  9. SODIUM RABEPRAZOLE [Concomitant]
     Indication: PROPHYLAXIS AGAINST GASTROINTESTINAL ULCER
     Route: 048
     Dates: start: 200903, end: 20121022
  10. SODIUM RABEPRAZOLE [Concomitant]
     Indication: GASTRIC ULCER
     Route: 048
     Dates: start: 200903, end: 20121022
  11. KETOPROFEN [Concomitant]
     Indication: RHEUMATOID ARTHRITIS
     Dosage: DAILY DOSE: ONE PATCH
     Route: 062
     Dates: start: 20090416
  12. KETOPROFEN [Concomitant]
     Indication: RHEUMATOID ARTHRITIS
     Route: 062
     Dates: start: 20101220
  13. ISONIAZID [Concomitant]
     Indication: ANTIBIOTIC PROPHYLAXIS
     Route: 048
     Dates: start: 20090603
  14. CANDESARTAN CILEXETIL [Concomitant]
     Dates: start: 200810
  15. PREDNISOLONE FARNESYLATE [Concomitant]
     Indication: RHEUMATOID ARTHRITIS
     Dosage: ADEQUATED DOSE
     Route: 062
     Dates: start: 20090416
  16. CELECOXIB [Concomitant]
     Indication: RHEUMATOID ARTHRITIS
     Route: 048
     Dates: start: 20090416, end: 20121022
  17. SODIUM VALPROATE [Concomitant]
     Indication: CONVULSION PROPHYLAXIS
     Route: 048
     Dates: start: 20100318, end: 20121022
  18. SODIUM VALPROATE [Concomitant]
     Indication: CONVULSION PROPHYLAXIS
     Dates: start: 20091217
  19. BETAMETHASONE [Concomitant]
     Indication: MENINGIOMA
     Route: 048
     Dates: start: 20100318
  20. ATORVASTATIN CALCIUM HYDRATE [Concomitant]
     Indication: HYPERCHOLESTEROLAEMIA
     Route: 048
     Dates: start: 20111222, end: 20121022

REACTIONS (1)
  - Subarachnoid haemorrhage [Fatal]
